FAERS Safety Report 25877448 (Version 1)
Quarter: 2025Q4

REPORT INFORMATION
  Report Type: Spontaneous
  Country: CN (occurrence: CN)
  Receive Date: 20251003
  Receipt Date: 20251003
  Transmission Date: 20260118
  Serious: Yes (Disabling, Other)
  Sender: TAKEDA
  Company Number: CN-HUTCHMED LIMITED-HMP2025CN02444

PATIENT
  Age: 35 Year
  Sex: Female
  Weight: 66 kg

DRUGS (6)
  1. FRUQUINTINIB [Suspect]
     Active Substance: FRUQUINTINIB
     Indication: Gastric cancer stage IV
     Dosage: 4 MILLIGRAM, QD
     Dates: start: 20250730, end: 20250921
  2. FRUQUINTINIB [Suspect]
     Active Substance: FRUQUINTINIB
     Dosage: 3 MILLIGRAM, QD
     Dates: start: 20250922, end: 20250927
  3. TISLELIZUMAB [Concomitant]
     Active Substance: TISLELIZUMAB
     Indication: Gastric cancer stage IV
     Dosage: 200 MILLIGRAM
     Dates: start: 20250730, end: 20250925
  4. SODIUM CHLORIDE [Concomitant]
     Active Substance: SODIUM CHLORIDE
     Indication: Vehicle solution use
     Dosage: 100 MILLILITER
     Dates: start: 20250730, end: 20250925
  5. SODIUM CHLORIDE [Concomitant]
     Active Substance: SODIUM CHLORIDE
     Dosage: 40 MILLILITER
     Dates: start: 20250730, end: 20250925
  6. PACLITAXEL [Concomitant]
     Active Substance: PACLITAXEL
     Indication: Gastric cancer stage IV
     Dosage: 0.2 GRAM
     Dates: start: 20250730, end: 20250925

REACTIONS (5)
  - Pain [Recovering/Resolving]
  - Rash vesicular [Recovering/Resolving]
  - Pruritus [Recovering/Resolving]
  - Drug eruption [Unknown]
  - Off label use [Unknown]

NARRATIVE: CASE EVENT DATE: 20250730
